FAERS Safety Report 5871828-6 (Version None)
Quarter: 2008Q3

REPORT INFORMATION
  Report Type: 
  Country: None (occurrence: None)
  Receive Date: 20080902
  Receipt Date: 20080820
  Transmission Date: 20090109
  Serious: Yes (Hospitalization)
  Sender: FDA-Public Use
  Company Number: 107#03#2008-04215

PATIENT
  Age: 81 Year
  Sex: Female

DRUGS (3)
  1. MIRTAZAPINE [Suspect]
     Indication: DEPRESSION
     Dosage: 15 MG, ORAL
     Route: 048
     Dates: start: 20071001, end: 20080225
  2. AMLODIPINE [Concomitant]
  3. ATENOLOL [Concomitant]

REACTIONS (1)
  - PEMPHIGUS [None]
